FAERS Safety Report 8831264 (Version 3)
Quarter: 2013Q1

REPORT INFORMATION
  Report Type: Spontaneous
  Country: US (occurrence: US)
  Receive Date: 20121008
  Receipt Date: 20130107
  Transmission Date: 20140127
  Serious: Yes (Other)
  Sender: FDA-Public Use
  Company Number: US-VERTEX PHARMACEUTICAL INC.-2012-021447

PATIENT
  Age: 54 Year
  Sex: Female
  Weight: 68 kg

DRUGS (6)
  1. INCIVEK [Suspect]
     Indication: HEPATITIS C
     Dosage: 750 MG, TID
     Route: 048
     Dates: start: 20120903, end: 20121114
  2. RIBASPHERE [Suspect]
     Indication: HEPATITIS C
     Dosage: 600 MG, BID
     Route: 048
     Dates: start: 20120903, end: 20121016
  3. RIBASPHERE [Suspect]
     Dosage: 400 MG, BID
     Route: 048
     Dates: start: 20121016
  4. PEGASYS [Suspect]
     Indication: HEPATITIS C
     Dosage: 180 ?G, QW
     Route: 058
     Dates: start: 20120903
  5. VISTARIL /00058402/ [Concomitant]
     Indication: ANXIETY
     Dosage: 25 MG, PRN
     Route: 048
  6. VISTARIL /00058402/ [Concomitant]
     Indication: PRURITUS

REACTIONS (12)
  - Anaemia [Recovered/Resolved]
  - Headache [Not Recovered/Not Resolved]
  - Oedema peripheral [Not Recovered/Not Resolved]
  - Pyrexia [Not Recovered/Not Resolved]
  - Chills [Not Recovered/Not Resolved]
  - Decreased appetite [Not Recovered/Not Resolved]
  - Fatigue [Not Recovered/Not Resolved]
  - Rash generalised [Recovered/Resolved]
  - Anorectal discomfort [Not Recovered/Not Resolved]
  - Anal pruritus [Not Recovered/Not Resolved]
  - Dysgeusia [Not Recovered/Not Resolved]
  - Nausea [Not Recovered/Not Resolved]
